FAERS Safety Report 18344953 (Version 1)
Quarter: 2020Q4

REPORT INFORMATION
  Report Type: Spontaneous
  Country: US (occurrence: US)
  Receive Date: 20201005
  Receipt Date: 20201005
  Transmission Date: 20210114
  Serious: No
  Sender: FDA-Public Use
  Company Number: US-BAYER-2020-213946

PATIENT
  Age: 61 Year
  Sex: Male

DRUGS (1)
  1. GADAVIST [Suspect]
     Active Substance: GADOBUTROL
     Dosage: 8 ML, ONCE
     Route: 042
     Dates: start: 20201002, end: 20201002

REACTIONS (3)
  - Pruritus [None]
  - Sneezing [None]
  - Urticaria [None]

NARRATIVE: CASE EVENT DATE: 20201002
